FAERS Safety Report 10757842 (Version 1)
Quarter: 2015Q1

REPORT INFORMATION
  Report Type: Spontaneous
  Country: US (occurrence: None)
  Receive Date: 20150202
  Receipt Date: 20150202
  Transmission Date: 20150721
  Serious: Yes (Hospitalization)
  Sender: FDA-Public Use
  Company Number: None

PATIENT
  Age: 43 Year
  Sex: Female

DRUGS (11)
  1. PEPCID [Concomitant]
     Active Substance: FAMOTIDINE
  2. NEURONTIN [Concomitant]
     Active Substance: GABAPENTIN
  3. AMPYRA [Suspect]
     Active Substance: DALFAMPRIDINE
     Indication: MULTIPLE SCLEROSIS
     Route: 048
     Dates: start: 201207
  4. BUPROPION [Concomitant]
     Active Substance: BUPROPION
  5. FLEXERIL [Concomitant]
     Active Substance: CYCLOBENZAPRINE HYDROCHLORIDE
  6. AMPYRA [Concomitant]
     Active Substance: DALFAMPRIDINE
  7. DECADRON [Concomitant]
     Active Substance: DEXAMETHASONE
  8. TYLENOL [Concomitant]
     Active Substance: ACETAMINOPHEN
  9. RITUXAN [Concomitant]
     Active Substance: RITUXIMAB
  10. BENADRYL [Concomitant]
     Active Substance: DIPHENHYDRAMINE HYDROCHLORIDE
  11. ATIVAN [Concomitant]
     Active Substance: LORAZEPAM

REACTIONS (1)
  - Multiple sclerosis [None]

NARRATIVE: CASE EVENT DATE: 20141230
